FAERS Safety Report 8017457-X (Version None)
Quarter: 2012Q1

REPORT INFORMATION
  Report Type: 
  Country: None (occurrence: None)
  Receive Date: 20120103
  Receipt Date: 20111222
  Transmission Date: 20120608
  Serious: Yes (Hospitalization, Other)
  Sender: FDA-Public Use
  Company Number: BG-AMGEN-BGRSP2011067737

PATIENT
  Age: 54 Year
  Sex: Female

DRUGS (4)
  1. ZANTAC [Concomitant]
     Dosage: UNK
  2. ENBREL [Suspect]
     Indication: PSORIASIS
  3. METHOTREXATE [Suspect]
     Indication: PSORIATIC ARTHROPATHY
     Dosage: 10 MG, WEEKLY
     Dates: start: 20110101, end: 20111030
  4. ENBREL [Suspect]
     Indication: PSORIATIC ARTHROPATHY
     Dosage: 50 MG, WEEKLY
     Route: 058
     Dates: start: 20110101, end: 20111030

REACTIONS (5)
  - ARTHRALGIA [None]
  - JOINT EFFUSION [None]
  - HYPOAESTHESIA [None]
  - CONJUNCTIVITIS [None]
  - URINARY TRACT INFECTION [None]
